FAERS Safety Report 15364445 (Version 9)
Quarter: 2020Q2

REPORT INFORMATION
  Report Type: Spontaneous
  Country: DE (occurrence: DE)
  Receive Date: 20180909
  Receipt Date: 20200506
  Transmission Date: 20200713
  Serious: Yes (Hospitalization, Other)
  Sender: FDA-Public Use
  Company Number: PHHY2018DE090644

PATIENT
  Age: 65 Year
  Sex: Male
  Weight: 80 kg

DRUGS (16)
  1. RAMIPRIL. [Concomitant]
     Active Substance: RAMIPRIL
     Indication: HYPERTENSION
     Dosage: 5 MG, QD
     Route: 048
     Dates: start: 201807
  2. METHYLPREDNISOLONE. [Suspect]
     Active Substance: METHYLPREDNISOLONE
     Dosage: 4 MG, UNK
     Route: 048
     Dates: start: 20180815, end: 20180817
  3. COBIMETINIB. [Suspect]
     Active Substance: COBIMETINIB
     Dosage: 60 MG, QD
     Route: 048
     Dates: start: 20180709
  4. VEMURAFENIB. [Suspect]
     Active Substance: VEMURAFENIB
     Dosage: 240 MG, QD
     Route: 048
     Dates: start: 20180823, end: 20180823
  5. CLEXANE [Concomitant]
     Active Substance: ENOXAPARIN SODIUM
     Indication: THROMBOSIS PROPHYLAXIS
     Dosage: 0.4 IU, QD
     Route: 058
     Dates: start: 201807, end: 201808
  6. IRENAT [Concomitant]
     Active Substance: SODIUM PERCHLORATE
     Indication: PRODUCT USED FOR UNKNOWN INDICATION
     Dosage: 60 DRP, QD
     Route: 048
     Dates: start: 20180827, end: 20180830
  7. COBIMETINIB. [Suspect]
     Active Substance: COBIMETINIB
     Indication: MALIGNANT MELANOMA
     Dosage: 60 MG, QD
     Route: 048
     Dates: start: 20180707, end: 20180716
  8. VEMURAFENIB. [Suspect]
     Active Substance: VEMURAFENIB
     Dosage: 240 MG
     Route: 048
     Dates: start: 20181016, end: 20181023
  9. DELIX [Concomitant]
     Indication: HYPERTENSION
     Dosage: 10 MG, QD
     Route: 048
     Dates: start: 201711, end: 20180718
  10. PANTOPRAZOLE [Concomitant]
     Active Substance: PANTOPRAZOLE
     Indication: PROPHYLAXIS AGAINST GASTROINTESTINAL ULCER
     Dosage: 40 MG, QD
     Route: 048
     Dates: start: 20180718, end: 20181030
  11. HEPARIN [Concomitant]
     Active Substance: HEPARIN SODIUM
     Indication: THROMBOSIS PROPHYLAXIS
     Dosage: 15000 IU, QD
     Route: 058
     Dates: start: 201807, end: 201807
  12. METHYLPREDNISOLONE. [Suspect]
     Active Substance: METHYLPREDNISOLONE
     Indication: DERMATITIS ALLERGIC
     Dosage: 1 DF, QD
     Route: 048
     Dates: start: 20180719
  13. METHYLPREDNISOLONE. [Suspect]
     Active Substance: METHYLPREDNISOLONE
     Dosage: 8 MG, UNK
     Route: 048
     Dates: start: 20180812, end: 20180814
  14. VEMURAFENIB. [Suspect]
     Active Substance: VEMURAFENIB
     Indication: MALIGNANT MELANOMA
     Dosage: 1920 MG, QD
     Route: 048
     Dates: start: 20180707, end: 20180716
  15. AMLODIPINE [Concomitant]
     Active Substance: AMLODIPINE BESYLATE
     Indication: HYPERTENSION
     Dosage: 5 MG, QD
     Route: 048
     Dates: start: 201711, end: 20180718
  16. AMLODIPINE [Concomitant]
     Active Substance: AMLODIPINE BESYLATE
     Dosage: 5 MG, QD
     Route: 048
     Dates: start: 201807

REACTIONS (38)
  - Chills [Recovered/Resolved]
  - Stevens-Johnson syndrome [Recovered/Resolved]
  - Staphylococcus test positive [Recovering/Resolving]
  - Laryngitis [Recovered/Resolved]
  - Pneumonia [Recovering/Resolving]
  - Urinary tract disorder [Recovered/Resolved]
  - Vomiting [Recovered/Resolved]
  - Cough [Recovered/Resolved]
  - General physical health deterioration [Recovered/Resolved]
  - Aspergillus test positive [Unknown]
  - Chills [Unknown]
  - Rash [Unknown]
  - Skin disorder [Unknown]
  - Infection [Recovering/Resolving]
  - Oral candidiasis [Unknown]
  - Sunburn [Recovered/Resolved]
  - Vomiting [Recovered/Resolved]
  - Hyperthyroidism [Unknown]
  - Stomatitis [Recovering/Resolving]
  - Urinary tract infection [Recovered/Resolved]
  - Skin infection [Recovered/Resolved]
  - Blood creatinine increased [Recovered/Resolved]
  - Ill-defined disorder [Recovering/Resolving]
  - Candida infection [Recovered/Resolved]
  - Mucosal infection [Unknown]
  - Pyrexia [Recovered/Resolved]
  - Pyrexia [Unknown]
  - Pyelocaliectasis [Recovered/Resolved]
  - Dermatitis allergic [Recovering/Resolving]
  - Oral bacterial infection [Unknown]
  - Hypokalaemia [Recovered/Resolved]
  - Pyrexia [Recovered/Resolved]
  - Rash [Recovered/Resolved]
  - Diarrhoea [Recovered/Resolved]
  - Hypocalcaemia [Recovering/Resolving]
  - Acute kidney injury [Recovered/Resolved]
  - Oral fungal infection [Recovering/Resolving]
  - Escherichia infection [Recovered/Resolved]

NARRATIVE: CASE EVENT DATE: 20180712
